FAERS Safety Report 25532213 (Version 1)
Quarter: 2025Q3

REPORT INFORMATION
  Report Type: Spontaneous
  Country: US (occurrence: US)
  Receive Date: 20250709
  Receipt Date: 20250709
  Transmission Date: 20251021
  Serious: No
  Sender: IPSEN BIOPHARMACEUTICALS, INC.
  Company Number: US-IPSEN Group, Research and Development-2025-15067

PATIENT
  Sex: Female
  Weight: 66.77 kg

DRUGS (22)
  1. IQIRVO [Suspect]
     Active Substance: ELAFIBRANOR
     Indication: Primary biliary cholangitis
  2. ZEPBOUND [Suspect]
     Active Substance: TIRZEPATIDE
     Indication: Product used for unknown indication
  3. METOPROLOL SUCCINATE [Concomitant]
     Active Substance: METOPROLOL SUCCINATE
  4. XARELTO [Concomitant]
     Active Substance: RIVAROXABAN
  5. WOMEN^S 50 PLUS [Concomitant]
  6. MAGNESIUM [Concomitant]
     Active Substance: MAGNESIUM
  7. ECHINACEA+ [Concomitant]
  8. FLAXSEED [Concomitant]
     Active Substance: FLAX SEED
  9. ZINC [Concomitant]
     Active Substance: ZINC
  10. DILTIAZEM [Concomitant]
     Active Substance: DILTIAZEM
  11. VITAMIN C [Concomitant]
     Active Substance: ASCORBIC ACID
  12. VITAMIN B12 [Concomitant]
     Active Substance: CYANOCOBALAMIN
  13. KLOR-CON M10 [Concomitant]
     Active Substance: POTASSIUM CHLORIDE
  14. PEPCID [Concomitant]
     Active Substance: FAMOTIDINE
  15. LUMIGAN [Concomitant]
     Active Substance: BIMATOPROST
  16. HYDROCHLOROTHIAZIDE [Concomitant]
     Active Substance: HYDROCHLOROTHIAZIDE
  17. BAYER CHEWABLE ASPIRIN [Concomitant]
  18. URSODIOL [Concomitant]
     Active Substance: URSODIOL
  19. COLACE [Concomitant]
     Active Substance: DOCUSATE SODIUM
  20. PROBIOTIC + ACIDOPHILUS [Concomitant]
  21. LOSARTAN POTASSIUM [Concomitant]
     Active Substance: LOSARTAN POTASSIUM
  22. CALTRATE [Concomitant]
     Active Substance: CALCIUM CARBONATE

REACTIONS (3)
  - Dyspepsia [Unknown]
  - Eructation [Unknown]
  - Muscle spasms [Unknown]
